FAERS Safety Report 25078988 (Version 1)
Quarter: 2025Q1

REPORT INFORMATION
  Report Type: Report from Study
  Country: US (occurrence: US)
  Receive Date: 20250314
  Receipt Date: 20250314
  Transmission Date: 20250409
  Serious: Yes (Other)
  Sender: ABBVIE
  Company Number: US-ABBVIE-6173303

PATIENT
  Age: 71 Year
  Sex: Male

DRUGS (1)
  1. SKYRIZI [Suspect]
     Active Substance: RISANKIZUMAB-RZAA
     Indication: Psoriasis
     Route: 058

REACTIONS (5)
  - Macular degeneration [Unknown]
  - Auditory disorder [Unknown]
  - Abdominal discomfort [Unknown]
  - Genital rash [Unknown]
  - Genital swelling [Unknown]

NARRATIVE: CASE EVENT DATE: 20240101
